FAERS Safety Report 23631303 (Version 1)
Quarter: 2024Q1

REPORT INFORMATION
  Report Type: Spontaneous
  Country: US (occurrence: None)
  Receive Date: 20240314
  Receipt Date: 20240314
  Transmission Date: 20240410
  Serious: No
  Sender: FDA-Public Use
  Company Number: 2024A051400

PATIENT
  Sex: Female

DRUGS (1)
  1. CRESTOR [Suspect]
     Active Substance: ROSUVASTATIN CALCIUM
     Route: 048

REACTIONS (6)
  - Abdominal discomfort [Unknown]
  - Gastritis [Unknown]
  - Hyperchlorhydria [Unknown]
  - Abdominal pain upper [Unknown]
  - Product use issue [Unknown]
  - Wrong technique in product usage process [Unknown]
